FAERS Safety Report 9734607 (Version 2)
Quarter: 2013Q4

REPORT INFORMATION
  Report Type: Report from Study
  Country: DE (occurrence: DE)
  Receive Date: 20131206
  Receipt Date: 20131206
  Transmission Date: 20140711
  Serious: Yes (Other)
  Sender: FDA-Public Use
  Company Number: DE-BEH-2013037455

PATIENT
  Age: 29 Year
  Sex: Male
  Weight: 91 kg

DRUGS (6)
  1. PRIVIGEN [Suspect]
     Dates: start: 20130214, end: 20130214
  2. PRIVIGEN [Suspect]
     Dosage: INFUSION RATE: MIN 50 ML/H MAX 100 ML/H
     Dates: start: 20130321, end: 20130321
  3. PRIVIGEN [Suspect]
     Indication: SECONDARY IMMUNODEFICIENCY
     Dosage: INFUSION RATE: MIN 50 ML/H MAX 105 ML/H
     Dates: start: 20130418, end: 20130418
  4. PRIVIGEN [Suspect]
     Dosage: INFUSION RATE: MIN. 50 ML/H MAX. 105 ML/H
     Dates: start: 20130516, end: 20130516
  5. PRIVIGEN [Suspect]
     Dosage: INFUSION RATE: 50 ML/H MAX. 100 ML/H
     Dates: start: 20130613, end: 20130613
  6. PRIVIGEN [Suspect]
     Dosage: INFUSION RATE: MIN 50 ML/H MAX 105 ML/H
     Dates: start: 20130711, end: 20130711

REACTIONS (2)
  - Pneumonia [Recovering/Resolving]
  - Chills [Recovered/Resolved]
